FAERS Safety Report 13851940 (Version 2)
Quarter: 2017Q3

REPORT INFORMATION
  Report Type: Spontaneous
  Country: JP (occurrence: JP)
  Receive Date: 20170809
  Receipt Date: 20170912
  Transmission Date: 20171127
  Serious: Yes (Death, Hospitalization)
  Sender: FDA-Public Use
  Company Number: JP-ELI_LILLY_AND_COMPANY-JP201708002340

PATIENT
  Age: 69 Year
  Sex: Female
  Weight: 48 kg

DRUGS (5)
  1. IRINOTECAN [Suspect]
     Active Substance: IRINOTECAN
     Indication: ADENOCARCINOMA OF COLON
     Dosage: 145 MG, CYCLICAL
     Route: 041
     Dates: start: 20170605, end: 20170710
  2. LEVOFOLINATE CALCIUM [Concomitant]
     Active Substance: LEVOLEUCOVORIN CALCIUM
     Indication: ADENOCARCINOMA OF COLON
     Dosage: 277 MG, UNK
     Route: 041
     Dates: start: 20170710, end: 20170712
  3. 5 FU [Suspect]
     Active Substance: FLUOROURACIL
     Indication: ADENOCARCINOMA OF COLON
     Dosage: 554 MG, CYCLICAL
     Route: 040
     Dates: start: 20170605, end: 20170710
  4. 5 FU [Suspect]
     Active Substance: FLUOROURACIL
     Dosage: 3328 MG, CYCLICAL
     Route: 041
     Dates: start: 20170605, end: 20170710
  5. CYRAMZA [Suspect]
     Active Substance: RAMUCIRUMAB
     Indication: ADENOCARCINOMA OF COLON
     Dosage: 328 MG, CYCLICAL
     Route: 041
     Dates: start: 20170605, end: 20170710

REACTIONS (4)
  - Large intestine perforation [Fatal]
  - Sepsis [Fatal]
  - Pancytopenia [Fatal]
  - Febrile neutropenia [Unknown]

NARRATIVE: CASE EVENT DATE: 201707
